FAERS Safety Report 8999200 (Version 1)
Quarter: 2013Q1

REPORT INFORMATION
  Report Type: Spontaneous
  Country: US (occurrence: US)
  Receive Date: 20130103
  Receipt Date: 20130103
  Transmission Date: 20140127
  Serious: No
  Sender: FDA-Public Use
  Company Number: US-JNJFOC-20121213692

PATIENT
  Sex: Female
  Weight: 72.58 kg

DRUGS (1)
  1. DURAGESIC [Suspect]
     Indication: PAIN
     Route: 062
     Dates: start: 2005

REACTIONS (8)
  - Product quality issue [Unknown]
  - Application site irritation [Not Recovered/Not Resolved]
  - Drug administered at inappropriate site [Not Recovered/Not Resolved]
  - Pruritus [Not Recovered/Not Resolved]
  - Application site rash [Not Recovered/Not Resolved]
  - Wrong technique in drug usage process [Not Recovered/Not Resolved]
  - Weight increased [Recovered/Resolved]
  - Wrong technique in drug usage process [Not Recovered/Not Resolved]
